FAERS Safety Report 11183175 (Version 3)
Quarter: 2015Q3

REPORT INFORMATION
  Report Type: Report from Study
  Country: TH (occurrence: TH)
  Receive Date: 20150611
  Receipt Date: 20150713
  Transmission Date: 20151125
  Serious: Yes (Death, Other)
  Sender: FDA-Public Use
  Company Number: PHHY2012TH018708

PATIENT
  Age: 61 Year
  Sex: Male
  Weight: 60.5 kg

DRUGS (2)
  1. GLIVEC [Suspect]
     Active Substance: IMATINIB MESYLATE
     Dosage: 400 MG, UNK
     Route: 048
     Dates: start: 20111201, end: 20150121
  2. GLIVEC [Suspect]
     Active Substance: IMATINIB MESYLATE
     Indication: GASTROINTESTINAL STROMAL TUMOUR
     Dosage: 400 MG, QD
     Route: 048
     Dates: start: 20111130

REACTIONS (10)
  - Jaundice [Unknown]
  - Eye swelling [Unknown]
  - Rash [Unknown]
  - Lung abscess [Fatal]
  - Hepatic mass [Fatal]
  - Metastases to liver [Fatal]
  - Sepsis [Fatal]
  - Hepatic function abnormal [Unknown]
  - Normochromic normocytic anaemia [Unknown]
  - Eye oedema [Unknown]

NARRATIVE: CASE EVENT DATE: 20140123
